FAERS Safety Report 8126158-9 (Version None)
Quarter: 2012Q1

REPORT INFORMATION
  Report Type: 
  Country: None (occurrence: None)
  Receive Date: 20120209
  Receipt Date: 20120203
  Transmission Date: 20120608
  Serious: Yes (Death, Other)
  Sender: FDA-Public Use
  Company Number: PHHY2009JP47118

PATIENT
  Age: 68 Year
  Sex: Female

DRUGS (5)
  1. NEORAL [Suspect]
     Indication: PUSTULAR PSORIASIS
     Dosage: 150 MG, UNK
     Route: 048
     Dates: start: 20060714
  2. NEORAL [Suspect]
     Dosage: 3 MG/KG, UNK
     Route: 048
  3. NEORAL [Suspect]
     Dosage: 100 MG, UNK
     Route: 048
     Dates: end: 20090424
  4. NEORAL [Suspect]
     Dosage: 50 MG, UNK
     Route: 048
     Dates: start: 20070824
  5. NEORAL [Suspect]
     Dosage: 50 MG, UNK
     Route: 048
     Dates: end: 20070518

REACTIONS (9)
  - METABOLIC DISORDER [None]
  - RASH PUSTULAR [None]
  - RENAL IMPAIRMENT [None]
  - RASH [None]
  - PYREXIA [None]
  - HEPATIC CIRRHOSIS [None]
  - HEPATIC FUNCTION ABNORMAL [None]
  - HEPATIC FAILURE [None]
  - MALAISE [None]
